FAERS Safety Report 17040032 (Version 5)
Quarter: 2019Q4

REPORT INFORMATION
  Report Type: Report from Study
  Country: None (occurrence: ES)
  Receive Date: 20191116
  Receipt Date: 20191128
  Transmission Date: 20200122
  Serious: Yes (Hospitalization)
  Sender: FDA-Public Use
  Company Number: ES-ABBVIE-19K-144-3000286-00

PATIENT
  Age: 75 Year
  Sex: Female

DRUGS (3)
  1. MADOPAR [Suspect]
     Active Substance: BENSERAZIDE HYDROCHLORIDE\LEVODOPA
     Route: 048
     Dates: start: 20191121
  2. DUODOPA [Suspect]
     Active Substance: CARBIDOPA\LEVODOPA
     Indication: PARKINSON^S DISEASE
     Route: 050
     Dates: start: 20111114, end: 201911
  3. MADOPAR [Suspect]
     Active Substance: BENSERAZIDE HYDROCHLORIDE\LEVODOPA
     Indication: PRODUCT USED FOR UNKNOWN INDICATION
     Dosage: HALF EVERY 24H
     Route: 048
     Dates: start: 201911, end: 20191121

REACTIONS (9)
  - Chorea [Recovered/Resolved]
  - Dyspepsia [Unknown]
  - Dyskinesia [Unknown]
  - Hyperhidrosis [Not Recovered/Not Resolved]
  - Anxiety [Unknown]
  - Fall [Not Recovered/Not Resolved]
  - Hip fracture [Not Recovered/Not Resolved]
  - Neuropathy peripheral [Unknown]
  - Trismus [Not Recovered/Not Resolved]

NARRATIVE: CASE EVENT DATE: 201911
